FAERS Safety Report 9108566 (Version 5)
Quarter: 2014Q1

REPORT INFORMATION
  Report Type: Report from Study
  Country: RO (occurrence: RO)
  Receive Date: 20130222
  Receipt Date: 20140129
  Transmission Date: 20141002
  Serious: Yes (Other)
  Sender: FDA-Public Use
  Company Number: RO-ROCHE-1102605

PATIENT
  Age: 66 Year
  Sex: Female
  Weight: 62 kg

DRUGS (8)
  1. VEMURAFENIB [Suspect]
     Indication: MALIGNANT MELANOMA
     Dosage: THE LAST DOSE PRIOR TO THE SAE WAS ON 09/AUG/2012
     Route: 048
     Dates: start: 20120519
  2. VEMURAFENIB [Suspect]
     Dosage: THE LAST DOSE PRIOR TO THE SAE WAS ON 18/JAN/2013.
     Route: 048
     Dates: start: 20120809
  3. TERTENSIF [Concomitant]
     Route: 065
     Dates: start: 2005
  4. THROMBO ASS [Concomitant]
     Route: 065
     Dates: start: 2005
  5. DETRALEX [Concomitant]
     Route: 065
     Dates: start: 201201
  6. AERIUS [Concomitant]
     Route: 065
     Dates: start: 20120714
  7. CLORAMFENICOL [Concomitant]
     Route: 065
     Dates: start: 20120714
  8. RETIN A CREAM [Concomitant]
     Route: 065
     Dates: start: 20120714

REACTIONS (1)
  - Keratoacanthoma [Recovered/Resolved]
